FAERS Safety Report 5746388-0 (Version None)
Quarter: 2008Q2

REPORT INFORMATION
  Report Type: 
  Country: None (occurrence: None)
  Receive Date: 20080522
  Receipt Date: 20080507
  Transmission Date: 20081010
  Serious: Yes (Hospitalization)
  Sender: FDA-Public Use
  Company Number: JP-ASTRAZENECA-2008AP02387

PATIENT
  Age: 23346 Day
  Sex: Female
  Weight: 65 kg

DRUGS (18)
  1. IRESSA [Suspect]
     Indication: LUNG ADENOCARCINOMA
     Route: 048
     Dates: start: 20070814, end: 20080325
  2. IRESSA [Suspect]
     Route: 048
     Dates: start: 20080422
  3. NORVASC [Concomitant]
     Indication: HYPERTENSION
     Route: 048
     Dates: start: 20000321
  4. ALOSENN [Concomitant]
     Indication: CONSTIPATION
     Route: 048
     Dates: start: 20041001
  5. MYSLEE [Concomitant]
     Indication: INSOMNIA
     Dosage: DOSE UNKNOWN
     Route: 048
     Dates: start: 20070807, end: 20071022
  6. CODEINE SUL TAB [Concomitant]
     Indication: COUGH
     Dosage: DOSE UNKNOWN
     Route: 048
     Dates: start: 20070812, end: 20070815
  7. LAMISIL [Concomitant]
     Indication: TINEA INFECTION
     Dosage: OPTIMUM DOSE
     Route: 003
     Dates: start: 20070822
  8. YM [Concomitant]
     Indication: ANOREXIA
     Dosage: FREQUENCY UNKNOWN
     Route: 048
     Dates: start: 20070830
  9. PERIACTIN [Concomitant]
     Indication: ANOREXIA
     Dosage: FREQUENCY UNKNOWN
     Route: 048
     Dates: start: 20070830
  10. PANVITAN [Concomitant]
     Indication: ANOREXIA
     Dosage: FREQUENCY UNKNOWN
     Route: 048
     Dates: start: 20070830
  11. ACUATIM [Concomitant]
     Indication: RASH
     Dosage: OPTIMUM DOSE
     Route: 003
     Dates: start: 20070830
  12. PANDEL [Concomitant]
     Indication: RASH
     Dosage: OPTIMUM DOSE
     Route: 003
     Dates: start: 20070830, end: 20080415
  13. DEXALTIN [Concomitant]
     Indication: STOMATITIS
     Dosage: OPTIMUM DOSE
     Route: 049
     Dates: start: 20070904, end: 20071022
  14. DEXALTIN [Concomitant]
     Dosage: OPTIMUM DOSE
     Route: 049
     Dates: start: 20071218, end: 20080409
  15. PETROLATUM,HYDROPHILIC [Concomitant]
     Indication: PARONYCHIA
     Dosage: OPTIMUM DOSE
     Route: 003
     Dates: start: 20071002, end: 20080409
  16. ACETIC ACID [Concomitant]
     Indication: PARONYCHIA
     Dosage: DOSE UNKNOWN
     Route: 003
     Dates: start: 20071002, end: 20080409
  17. KERATINAMIN [Concomitant]
     Indication: XERODERMA
     Dosage: OPTIMUM DOSE
     Route: 003
     Dates: start: 20071113, end: 20080415
  18. TOPSYM [Concomitant]
     Indication: RASH
     Dosage: OPTIMUM DOSE
     Route: 003
     Dates: start: 20071225, end: 20080415

REACTIONS (5)
  - ALANINE AMINOTRANSFERASE INCREASED [None]
  - ASPARTATE AMINOTRANSFERASE INCREASED [None]
  - DYSGEUSIA [None]
  - HEPATIC FUNCTION ABNORMAL [None]
  - TREMOR [None]
